FAERS Safety Report 4512349-2 (Version None)
Quarter: 2004Q4

REPORT INFORMATION
  Report Type: 
  Country: None (occurrence: None)
  Receive Date: 20041123
  Receipt Date: 20041109
  Transmission Date: 20050328
  Serious: Yes (Disabling)
  Sender: FDA-Public Use
  Company Number: 2004SE06344

PATIENT
  Age: 86 Year
  Sex: Female

DRUGS (3)
  1. NEXIUM [Suspect]
     Indication: GASTROOESOPHAGEAL REFLUX DISEASE
     Dates: start: 20040601
  2. NEXIUM [Suspect]
     Indication: PROPHYLAXIS
     Dates: start: 20040601
  3. IMDUR [Concomitant]

REACTIONS (3)
  - OPEN WOUND [None]
  - PRURITUS [None]
  - URTICARIA [None]
